FAERS Safety Report 8232816-8 (Version None)
Quarter: 2012Q1

REPORT INFORMATION
  Report Type: 
  Country: None (occurrence: None)
  Receive Date: 20120323
  Receipt Date: 20120306
  Transmission Date: 20120608
  Serious: Yes (Other)
  Sender: FDA-Public Use
  Company Number: PHHY2012EC025149

PATIENT
  Sex: Female

DRUGS (2)
  1. ZOLEDRONOC ACID [Suspect]
     Dosage: 5MG/100ML/YEARLY
     Route: 042
     Dates: start: 20110915
  2. ZOLEDRONOC ACID [Suspect]
     Indication: OSTEOPOROSIS
     Dosage: 5MG/100ML/YEARLY
     Route: 042
     Dates: start: 20090915

REACTIONS (4)
  - ABDOMINAL PAIN [None]
  - INFLUENZA [None]
  - ABDOMINAL INFECTION [None]
  - BONE PAIN [None]
